FAERS Safety Report 9607370 (Version 1)
Quarter: 2013Q4

REPORT INFORMATION
  Report Type: Spontaneous
  Country: US (occurrence: None)
  Receive Date: 20131007
  Receipt Date: 20131007
  Transmission Date: 20140711
  Serious: Yes (Other)
  Sender: FDA-Public Use
  Company Number: COR_00020_2013

PATIENT
  Sex: Male

DRUGS (8)
  1. ETOPOSIDE [Suspect]
     Indication: NEUROBLASTOMA
     Dosage: (DF [1.2 G/M^2); 6 COURSES]),
  2. CYCLOPHOSPHAMIDE [Concomitant]
     Indication: NEUROBLASTOMA
  3. TOPOTECAN [Concomitant]
  4. VINCRISTINE [Concomitant]
  5. DOXORUBICIN [Concomitant]
  6. CISPLATINUM [Concomitant]
  7. MELPHALAN [Concomitant]
  8. CARBOPLATIN [Concomitant]

REACTIONS (3)
  - Mucoepidermoid carcinoma [None]
  - Second primary malignancy [None]
  - Salivary gland cancer [None]
